FAERS Safety Report 6806578-2 (Version None)
Quarter: 2010Q2

REPORT INFORMATION
  Report Type: 
  Country: None (occurrence: None)
  Receive Date: 20100629
  Receipt Date: 20080423
  Transmission Date: 20101027
  Serious: Yes (Hospitalization)
  Sender: FDA-Public Use
  Company Number: US-PFIZER INC-2008028265

PATIENT
  Sex: Male

DRUGS (5)
  1. DOXAZOSIN MESYLATE [Suspect]
     Indication: URINARY TRACT DISORDER
     Route: 048
     Dates: end: 20080301
  2. ARICEPT [Suspect]
     Indication: COGNITIVE DISORDER
     Route: 048
     Dates: start: 20071025
  3. ARICEPT [Suspect]
     Route: 048
     Dates: end: 20080301
  4. DIGOXIN [Concomitant]
     Dosage: 1 DOSAGE FORM
     Route: 048
  5. ZOCOR [Concomitant]
     Dosage: 1 DOSAGE FORM
     Route: 048

REACTIONS (3)
  - DIZZINESS [None]
  - GAIT DISTURBANCE [None]
  - LOSS OF CONSCIOUSNESS [None]
